FAERS Safety Report 21851064 (Version 1)
Quarter: 2023Q1

REPORT INFORMATION
  Report Type: Spontaneous
  Country: NL (occurrence: NL)
  Receive Date: 20230111
  Receipt Date: 20230111
  Transmission Date: 20230417
  Serious: Yes (Other)
  Sender: FDA-Public Use
  Company Number: None

PATIENT
  Sex: Female
  Weight: 120 kg

DRUGS (2)
  1. APIXABAN [Suspect]
     Active Substance: APIXABAN
     Indication: Thrombosis prophylaxis
     Dosage: 2 X 10
     Dates: start: 20221221, end: 20221223
  2. APIXABAN [Suspect]
     Active Substance: APIXABAN
     Dates: start: 20221224

REACTIONS (4)
  - Fatigue [Not Recovered/Not Resolved]
  - Vasculitis [Not Recovered/Not Resolved]
  - Memory impairment [Unknown]
  - Headache [Not Recovered/Not Resolved]
